FAERS Safety Report 8835585 (Version 4)
Quarter: 2013Q2

REPORT INFORMATION
  Report Type: Spontaneous
  Country: JP (occurrence: JP)
  Receive Date: 20121011
  Receipt Date: 20130627
  Transmission Date: 20140414
  Serious: Yes (Other)
  Sender: FDA-Public Use
  Company Number: JP-ACTELION-A-CH2012-72544

PATIENT
  Age: 23 Year
  Sex: Female
  Weight: 38 kg

DRUGS (6)
  1. TRACLEER [Suspect]
     Indication: SKIN ULCER
     Dosage: 62.5 MG, BID
     Route: 048
     Dates: start: 20120828, end: 20120927
  2. TRACLEER [Suspect]
     Dosage: 31.25 MG, BID
     Route: 048
     Dates: start: 20120806, end: 20120827
  3. PREDNISOLONE [Concomitant]
  4. ALFACALCIDOL [Concomitant]
  5. TEPRENONE [Concomitant]
  6. BERAPROST SODIUM [Concomitant]

REACTIONS (10)
  - Foetal death [Unknown]
  - Abortion spontaneous [Unknown]
  - Pregnancy [Unknown]
  - Foetal growth restriction [Unknown]
  - Proteinuria [Unknown]
  - Mixed connective tissue disease [Unknown]
  - Concomitant disease aggravated [Unknown]
  - Pericardial effusion [Unknown]
  - Placental insufficiency [Unknown]
  - Placental infarction [Unknown]
